FAERS Safety Report 9674761 (Version 3)
Quarter: 2013Q4

REPORT INFORMATION
  Report Type: Spontaneous
  Country: US (occurrence: US)
  Receive Date: 20131107
  Receipt Date: 20131217
  Transmission Date: 20140711
  Serious: Yes (Other)
  Sender: FDA-Public Use
  Company Number: US-BANPHARM-20131847

PATIENT
  Age: 32 Year
  Sex: Female
  Weight: 2.5 kg

DRUGS (1)
  1. ALEVE LIQUID GELS 220 MG [Suspect]
     Indication: NECK PAIN
     Dosage: 1 DF, PRN,
     Route: 048
     Dates: start: 201310, end: 20131024

REACTIONS (2)
  - Haematochezia [Recovered/Resolved]
  - Haemorrhoids [Unknown]
